FAERS Safety Report 15271900 (Version 1)
Quarter: 2018Q3

REPORT INFORMATION
  Report Type: Spontaneous
  Country: JP (occurrence: JP)
  Receive Date: 20180813
  Receipt Date: 20180813
  Transmission Date: 20181010
  Serious: Yes (Life-Threatening, Disabling, Other)
  Sender: FDA-Public Use
  Company Number: JP-ABBVIE-18S-087-2449269-00

PATIENT
  Age: 36 Year
  Sex: Male
  Weight: 109 kg

DRUGS (11)
  1. SEVOFRANE [Suspect]
     Active Substance: SEVOFLURANE
     Indication: INDUCTION AND MAINTENANCE OF ANAESTHESIA
     Route: 055
     Dates: start: 20180316, end: 20180316
  2. DORMICUM [Concomitant]
     Indication: INDUCTION AND MAINTENANCE OF ANAESTHESIA
     Route: 042
     Dates: start: 20180316, end: 20180316
  3. NOR?ADRENALIN [Concomitant]
     Indication: BLOOD PRESSURE MANAGEMENT
     Dosage: 0.12  0.15 MCG/KG/MIN
     Route: 041
     Dates: start: 20180316, end: 20180322
  4. FENTANYL CITRATE. [Concomitant]
     Active Substance: FENTANYL CITRATE
     Indication: INDUCTION AND MAINTENANCE OF ANAESTHESIA
     Route: 042
     Dates: start: 20180316, end: 20180316
  5. DOBUTREX [Concomitant]
     Active Substance: DOBUTAMINE HYDROCHLORIDE
     Indication: BLOOD PRESSURE MANAGEMENT
     Dosage: 1  2 MCG/KG/MIN AT 0.3%
     Route: 041
     Dates: start: 20180316, end: 20180414
  6. PRECEDEX [Concomitant]
     Active Substance: DEXMEDETOMIDINE HYDROCHLORIDE
     Indication: SEDATION
     Dosage: 0.2  0.6 MCG/KG/MIN
     Route: 041
     Dates: start: 20180316, end: 20180328
  7. PROPOFOL. [Suspect]
     Active Substance: PROPOFOL
     Indication: SEDATION
     Dosage: 3  10 ML/HR
     Route: 041
     Dates: start: 20180316, end: 20180319
  8. ESLAX [Concomitant]
     Active Substance: ROCURONIUM BROMIDE
     Indication: HYPOTONIA
     Dosage: 120  600 MG
     Route: 042
     Dates: start: 20180316, end: 20180316
  9. NITROGLYCERINE [Concomitant]
     Active Substance: NITROGLYCERIN
     Indication: CORONARY ARTERY DILATATION
     Dosage: 0.05  0.2 MCG/KG/MIN
     Route: 041
     Dates: start: 20180316, end: 20180317
  10. REMIFENTANIL HYDROCHLORIDE. [Concomitant]
     Active Substance: REMIFENTANIL HYDROCHLORIDE
     Indication: MAINTENANCE OF ANAESTHESIA
     Dosage: 0.1  0.2 MCG/KG/MIN
     Route: 041
     Dates: start: 20180316, end: 20180316
  11. INOVAN [Concomitant]
     Active Substance: DOPAMINE HYDROCHLORIDE
     Indication: BLOOD PRESSURE MANAGEMENT
     Dosage: 1  2 MCG/KG/MIN AT 0.3%
     Route: 041
     Dates: start: 20180316, end: 20180327

REACTIONS (3)
  - Hyperthermia malignant [Recovered/Resolved]
  - Hypercreatininaemia [Recovered/Resolved]
  - Acute kidney injury [Recovered/Resolved]

NARRATIVE: CASE EVENT DATE: 20180316
